FAERS Safety Report 16122191 (Version 1)
Quarter: 2019Q2

REPORT INFORMATION
  Report Type: Spontaneous
  Country: US (occurrence: US)
  Receive Date: 20190326
  Receipt Date: 20190326
  Transmission Date: 20190711
  Serious: No
  Sender: FDA-Public Use
  Company Number: None

PATIENT
  Age: 63 Year
  Sex: Female
  Weight: 51.3 kg

DRUGS (1)
  1. ZICAM COLD REMEDY RAPIDMELTS [Suspect]
     Active Substance: HOMEOPATHICS\ZINC ACETATE ANHYDROUS\ZINC GLUCONATE
     Indication: NASOPHARYNGITIS
     Dosage: ?          QUANTITY:1 TABLET(S);OTHER FREQUENCY:EVERY 3 HOURS;?
     Route: 048
     Dates: start: 20190202, end: 20190203

REACTIONS (6)
  - Gastrooesophageal reflux disease [None]
  - Ageusia [None]
  - Taste disorder [None]
  - Dysgeusia [None]
  - Gingival discomfort [None]
  - Oral discomfort [None]

NARRATIVE: CASE EVENT DATE: 20190202
